FAERS Safety Report 19274964 (Version 2)
Quarter: 2021Q2

REPORT INFORMATION
  Report Type: Spontaneous
  Country: US (occurrence: US)
  Receive Date: 20210519
  Receipt Date: 20210602
  Transmission Date: 20210717
  Serious: Yes (Other)
  Sender: FDA-Public Use
  Company Number: US-ALLERGAN-2117536US

PATIENT
  Sex: Female

DRUGS (2)
  1. BYSTOLIC [Suspect]
     Active Substance: NEBIVOLOL HYDROCHLORIDE
     Dosage: 5 MG, QPM
  2. BYSTOLIC [Suspect]
     Active Substance: NEBIVOLOL HYDROCHLORIDE
     Indication: HYPERTENSION
     Dosage: 5 MG, QPM

REACTIONS (10)
  - Pain [Recovered/Resolved]
  - Hyperhidrosis [Recovered/Resolved]
  - Inappropriate schedule of product administration [Unknown]
  - Macular degeneration [Not Recovered/Not Resolved]
  - Fatigue [Recovered/Resolved]
  - Oral discomfort [Recovered/Resolved]
  - Muscle twitching [Recovered/Resolved]
  - Feeling abnormal [Recovered/Resolved]
  - Suspected product quality issue [Unknown]
  - Gastric dilatation [Recovered/Resolved]

NARRATIVE: CASE EVENT DATE: 2016
